FAERS Safety Report 6050700-5 (Version None)
Quarter: 2009Q1

REPORT INFORMATION
  Report Type: 
  Country: None (occurrence: None)
  Receive Date: 20090121
  Receipt Date: 20090121
  Transmission Date: 20090719
  Serious: Yes (Other)
  Sender: FDA-Public Use
  Company Number: None

PATIENT
  Age: 54 Year
  Sex: Male
  Weight: 64.8644 kg

DRUGS (1)
  1. FENTANYL TRANSDERMAL SYSTEM [Suspect]
     Indication: BACK PAIN
     Dosage: 1 PATCH TO DRY, CLEAN SKIN EVERY 72 HOURS TRANSDERMAL
     Route: 062

REACTIONS (1)
  - PRODUCT QUALITY ISSUE [None]
